FAERS Safety Report 19116314 (Version 1)
Quarter: 2021Q2

REPORT INFORMATION
  Report Type: Spontaneous
  Country: DE (occurrence: DE)
  Receive Date: 20210410
  Receipt Date: 20210410
  Transmission Date: 20210717
  Serious: Yes (Hospitalization, Other)
  Sender: FDA-Public Use
  Company Number: DE-ORGANON-O2104DEU000442

PATIENT
  Age: 31 Year
  Sex: Female

DRUGS (4)
  1. GONAL?F [Suspect]
     Active Substance: FOLLITROPIN
     Indication: ASSISTED REPRODUCTIVE TECHNOLOGY
     Dosage: 150 IU DAILY
     Dates: start: 20210303, end: 20210314
  2. CLEXANE [Concomitant]
     Active Substance: ENOXAPARIN SODIUM
     Dosage: 40 MILLIGRAM, Q12H (THERAPY PAUSED 15?MAR?2021 IN THE EVENING AND 16?MAR?2021 IN THE MORNING)
  3. ORGALUTRAN [Suspect]
     Active Substance: GANIRELIX ACETATE
     Indication: ASSISTED REPRODUCTIVE TECHNOLOGY
     Dosage: UNK
     Dates: start: 20210306, end: 20210314
  4. OVITRELLE [Suspect]
     Active Substance: CHORIOGONADOTROPIN ALFA
     Indication: ASSISTED REPRODUCTIVE TECHNOLOGY
     Dosage: UNK
     Dates: start: 20210314

REACTIONS (3)
  - Ovarian haemorrhage [Not Recovered/Not Resolved]
  - Ovarian hyperstimulation syndrome [Not Recovered/Not Resolved]
  - Intra-abdominal haemorrhage [Not Recovered/Not Resolved]

NARRATIVE: CASE EVENT DATE: 20210318
